FAERS Safety Report 5328192-0 (Version None)
Quarter: 2007Q2

REPORT INFORMATION
  Report Type: 
  Country: None (occurrence: None)
  Receive Date: 20070514
  Receipt Date: 20070426
  Transmission Date: 20071010
  Serious: Yes (Other)
  Sender: FDA-Public Use
  Company Number: 2007000756

PATIENT
  Age: 54 Year
  Sex: Male

DRUGS (4)
  1. ERLOTINIB (TABLET) (ERLOTINIB HCI) [Suspect]
     Indication: NON-SMALL CELL LUNG CANCER
     Dosage: 150 MG QD, ORAL
     Route: 048
     Dates: start: 20060704, end: 20070319
  2. BEVACIZUMAB (INJECTION FOR INFUSION) [Suspect]
     Indication: NON-SMALL CELL LUNG CANCER
     Dosage: 1028 MG Q3W, INTRAVENOUS
     Route: 042
     Dates: start: 20060704, end: 20070228
  3. GEMCITABINE [Suspect]
     Indication: NON-SMALL CELL LUNG CANCER
     Dosage: 2300 MG QW, INTRAVENOUS
     Route: 042
     Dates: start: 20070328
  4. CISPLATIN [Suspect]
     Indication: NON-SMALL CELL LUNG CANCER
     Dosage: 144 MG QW3, INTRAVENOUS
     Route: 042
     Dates: start: 20070328

REACTIONS (4)
  - EPISTAXIS [None]
  - LEUKOPENIA [None]
  - NEUTROPENIA [None]
  - THROMBOCYTOPENIA [None]
